FAERS Safety Report 10022454 (Version 2)
Quarter: 2014Q1

REPORT INFORMATION
  Report Type: Spontaneous
  Country: JP (occurrence: JP)
  Receive Date: 20140319
  Receipt Date: 20140319
  Transmission Date: 20141002
  Serious: Yes (Death, Other)
  Sender: FDA-Public Use
  Company Number: JP-PFIZER INC-2014056198

PATIENT
  Age: 69 Year
  Sex: Female

DRUGS (4)
  1. ADRIACIN [Suspect]
     Indication: BLADDER CANCER
     Route: 041
  2. METHOTREXATE SODIUM [Concomitant]
     Indication: BLADDER CANCER
     Route: 041
  3. CISPLATIN [Concomitant]
     Indication: BLADDER CANCER
     Route: 041
  4. VINBLASTINE [Concomitant]
     Indication: BLADDER CANCER
     Route: 041

REACTIONS (3)
  - Septic shock [Fatal]
  - Pyelonephritis [Unknown]
  - Febrile neutropenia [Unknown]
